FAERS Safety Report 6663627-2 (Version None)
Quarter: 2010Q1

REPORT INFORMATION
  Report Type: 
  Country: None (occurrence: None)
  Receive Date: 20100331
  Receipt Date: 20100331
  Transmission Date: 20100710
  Serious: Yes (Other)
  Sender: FDA-Public Use
  Company Number: None

PATIENT
  Age: 56 Year
  Sex: Male
  Weight: 92.0802 kg

DRUGS (1)
  1. VOTRIENT [Suspect]
     Indication: RENAL CANCER
     Dosage: 800MG QD PO
     Route: 048
     Dates: start: 20100317, end: 20100330

REACTIONS (6)
  - COMPLEX PARTIAL SEIZURES [None]
  - CONFUSIONAL STATE [None]
  - DISEASE COMPLICATION [None]
  - FALL [None]
  - UNRESPONSIVE TO STIMULI [None]
  - VESTIBULAR DISORDER [None]
